FAERS Safety Report 23676986 (Version 1)
Quarter: 2024Q1

REPORT INFORMATION
  Report Type: Spontaneous
  Country: US (occurrence: US)
  Receive Date: 20240327
  Receipt Date: 20240327
  Transmission Date: 20240410
  Serious: Yes (Death)
  Sender: FDA-Public Use
  Company Number: US-LNK INTERNATIONAL, INC.-2154889

PATIENT
  Age: 28 Year
  Sex: Female

DRUGS (1)
  1. SUPHEDRINE PE SINUS PLUS ALLERGY [Suspect]
     Active Substance: CHLORPHENIRAMINE MALEATE\PHENYLEPHRINE HYDROCHLORIDE
     Indication: Product used for unknown indication

REACTIONS (1)
  - Overdose [Fatal]
